FAERS Safety Report 6708027-1 (Version None)
Quarter: 2010Q2

REPORT INFORMATION
  Report Type: 
  Country: None (occurrence: None)
  Receive Date: 20100503
  Receipt Date: 20090909
  Transmission Date: 20101027
  Serious: Yes (Other)
  Sender: FDA-Public Use
  Company Number: US-BAYER-200926921NA

PATIENT
  Age: 51 Year
  Sex: Female

DRUGS (3)
  1. BETASERON [Suspect]
     Indication: MULTIPLE SCLEROSIS
     Dosage: TOTAL DAILY DOSE: 8 MIU
     Route: 058
     Dates: start: 20090624
  2. BETASERON [Suspect]
     Dosage: TOTAL DAILY DOSE: 8 MIU
     Route: 058
     Dates: start: 20090327, end: 20090619
  3. ALEVE (CAPLET) [Concomitant]
     Indication: PREMEDICATION

REACTIONS (6)
  - CHEST PAIN [None]
  - FATIGUE [None]
  - HERPES ZOSTER [None]
  - IMMUNOSUPPRESSION [None]
  - RASH [None]
  - URTICARIA [None]
